FAERS Safety Report 8879987 (Version 1)
Quarter: 2012Q4

REPORT INFORMATION
  Report Type: 
  Country: BR (occurrence: BR)
  Receive Date: 20121101
  Receipt Date: 20121101
  Transmission Date: 20130627
  Serious: Yes (Other)
  Sender: FDA-Public Use
  Company Number: BR-AMGEN-BRASP2012014433

PATIENT
  Age: 40 Year
  Sex: Female
  Weight: 50 kg

DRUGS (2)
  1. ENBREL [Suspect]
     Indication: RHEUMATOID ARTHRITIS
     Dosage: 50 mg, once weekly
     Route: 058
     Dates: start: 201205
  2. OS-CAL D [Concomitant]
     Indication: RHEUMATOID ARTHRITIS
     Dosage: 1 tablet (500 mg), once a day
     Route: 048

REACTIONS (2)
  - Rheumatoid arthritis [Unknown]
  - Injection site pain [Unknown]
